FAERS Safety Report 24710004 (Version 2)
Quarter: 2025Q1

REPORT INFORMATION
  Report Type: Spontaneous
  Country: GB (occurrence: GB)
  Receive Date: 20241209
  Receipt Date: 20250311
  Transmission Date: 20250408
  Serious: Yes (Hospitalization, Other)
  Sender: AUROBINDO
  Company Number: GB-MLMSERVICE-20241125-PI270532-00202-1

PATIENT
  Age: 3 Decade
  Sex: Female

DRUGS (7)
  1. LINEZOLID [Suspect]
     Active Substance: LINEZOLID
     Indication: Mycobacterium abscessus infection
     Dosage: 600 MILLIGRAM, TWO TIMES A DAY (INITIATED 3.5 YEARS BEFORE THE INDEX ADMISSION AND PAUSED SEVERAL TI
     Route: 048
  2. LINEZOLID [Suspect]
     Active Substance: LINEZOLID
     Dosage: 600 MILLIGRAM, ONCE A DAY (INCREASED 6 MONTHS BEFORE THE INDEX ADMISSION AND PAUSED SEVERAL TIMES)
     Route: 048
  3. CLOFAZIMINE [Concomitant]
     Active Substance: CLOFAZIMINE
     Indication: Mycobacterium abscessus infection
     Dosage: 100 MILLIGRAM, ONCE A DAY
     Route: 048
  4. AZITHROMYCIN [Concomitant]
     Active Substance: AZITHROMYCIN
     Indication: Mycobacterium abscessus infection
     Dosage: 500 MILLIGRAM, ONCE A DAY
     Route: 048
  5. AMIKACIN [Concomitant]
     Active Substance: AMIKACIN
     Indication: Mycobacterium abscessus infection
     Dosage: 500 MILLIGRAM, TWO TIMES A DAY
  6. CIPROFLOXACIN [Concomitant]
     Active Substance: CIPROFLOXACIN
     Indication: Infective pulmonary exacerbation of cystic fibrosis
     Dosage: 750 MILLIGRAM, TWO TIMES A DAY
     Route: 048
  7. CIPROFLOXACIN [Concomitant]
     Active Substance: CIPROFLOXACIN
     Indication: Pseudomonas infection

REACTIONS (3)
  - Lactic acidosis [Recovered/Resolved]
  - Pancytopenia [Recovered/Resolved]
  - Coagulation time abnormal [Recovered/Resolved]
